FAERS Safety Report 12575829 (Version 1)
Quarter: 2016Q3

REPORT INFORMATION
  Report Type: Spontaneous
  Country: US (occurrence: US)
  Receive Date: 20160720
  Receipt Date: 20160720
  Transmission Date: 20161109
  Serious: No
  Sender: FDA-Public Use
  Company Number: US-BAYER-2016-135940

PATIENT
  Age: 6 Year
  Sex: Male
  Weight: 104.31 kg

DRUGS (2)
  1. ALEVE [Suspect]
     Active Substance: NAPROXEN SODIUM
     Indication: HEADACHE
     Dosage: 2 DF, UNK
     Route: 048
  2. EQUATE [Concomitant]
     Active Substance: UNSPECIFIED INGREDIENT

REACTIONS (2)
  - Drug administered to patient of inappropriate age [None]
  - Product use issue [None]

NARRATIVE: CASE EVENT DATE: 20160711
